FAERS Safety Report 12599857 (Version 1)
Quarter: 2016Q3

REPORT INFORMATION
  Report Type: Spontaneous
  Country: DE (occurrence: DE)
  Receive Date: 20160727
  Receipt Date: 20160727
  Transmission Date: 20161109
  Serious: Yes (Other)
  Sender: FDA-Public Use
  Company Number: DE-PFIZER INC-2009174277

PATIENT
  Age: 66 Year
  Sex: Female

DRUGS (4)
  1. ETOPOSIDE. [Suspect]
     Active Substance: ETOPOSIDE
     Indication: NON-SMALL CELL LUNG CANCER
     Dosage: 175 MG, UNK
  2. ETOPOSIDE. [Suspect]
     Active Substance: ETOPOSIDE
     Dosage: 125 MG, UNK
     Dates: end: 200805
  3. CARBOPLATIN. [Suspect]
     Active Substance: CARBOPLATIN
     Dosage: 475 MG, UNK
     Dates: end: 200805
  4. CARBOPLATIN. [Suspect]
     Active Substance: CARBOPLATIN
     Indication: NON-SMALL CELL LUNG CANCER
     Dosage: 525 MG, UNK

REACTIONS (4)
  - Aphasia [Unknown]
  - Ataxia [Unknown]
  - Hypertonia [Unknown]
  - Hypotonia [Unknown]

NARRATIVE: CASE EVENT DATE: 20080916
